FAERS Safety Report 20629435 (Version 1)
Quarter: 2022Q1

REPORT INFORMATION
  Report Type: Report from Study
  Country: US (occurrence: US)
  Receive Date: 20220323
  Receipt Date: 20220323
  Transmission Date: 20220424
  Serious: Yes (Other)
  Sender: FDA-Public Use
  Company Number: US-ABBVIE-22K-163-4326734-00

PATIENT
  Sex: Male

DRUGS (1)
  1. SKYRIZI [Suspect]
     Active Substance: RISANKIZUMAB-RZAA
     Indication: Psoriasis
     Dosage: CF
     Route: 058

REACTIONS (4)
  - Ankle operation [Not Recovered/Not Resolved]
  - Papule [Recovering/Resolving]
  - Fall [Not Recovered/Not Resolved]
  - Therapeutic response shortened [Recovering/Resolving]
